FAERS Safety Report 11116544 (Version 1)
Quarter: 2015Q2

REPORT INFORMATION
  Report Type: Spontaneous
  Country: GB (occurrence: GB)
  Receive Date: 20150515
  Receipt Date: 20150515
  Transmission Date: 20150821
  Serious: Yes (Other)
  Sender: FDA-Public Use
  Company Number: 2015SP001591

PATIENT
  Sex: Female

DRUGS (2)
  1. LATUDA [Suspect]
     Active Substance: LURASIDONE HYDROCHLORIDE
     Indication: BIPOLAR DISORDER
     Route: 048
  2. LITHIUM. [Concomitant]
     Active Substance: LITHIUM

REACTIONS (8)
  - Weight decreased [Unknown]
  - Off label use [Unknown]
  - Swelling [Unknown]
  - Agitation [Unknown]
  - Hyperhidrosis [Unknown]
  - Apathy [Unknown]
  - Depressed mood [Unknown]
  - Sleep disorder [Unknown]
